FAERS Safety Report 8226553-3 (Version None)
Quarter: 2012Q1

REPORT INFORMATION
  Report Type: 
  Country: None (occurrence: None)
  Receive Date: 20120322
  Receipt Date: 20120319
  Transmission Date: 20120608
  Serious: No
  Sender: FDA-Public Use
  Company Number: US-BIOGENIDEC-2011BI018855

PATIENT
  Age: 54 Year
  Sex: Female

DRUGS (1)
  1. TYSABRI [Suspect]
     Indication: MULTIPLE SCLEROSIS
     Route: 042
     Dates: start: 20110418, end: 20110909

REACTIONS (5)
  - SENSATION OF HEAVINESS [None]
  - DRUG INEFFECTIVE [None]
  - WEIGHT INCREASED [None]
  - MUSCULAR WEAKNESS [None]
  - DEPRESSION [None]
